FAERS Safety Report 7055171-8 (Version None)
Quarter: 2010Q4

REPORT INFORMATION
  Report Type: 
  Country: None (occurrence: None)
  Receive Date: 20101021
  Receipt Date: 20101015
  Transmission Date: 20110411
  Serious: Yes (Hospitalization)
  Sender: FDA-Public Use
  Company Number: PHHO2010RO13517

PATIENT
  Sex: Female
  Weight: 18 kg

DRUGS (8)
  1. TOBRAMYCIN SULFATE INJECTION [Suspect]
     Indication: CYSTIC FIBROSIS
     Dosage: CODE NOT BROKEN
     Dates: start: 20100811
  2. BLINDED PLACEBO COMP-PLA+ [Suspect]
     Indication: CYSTIC FIBROSIS
     Dosage: CODE NOT BROKEN
     Dates: start: 20100811
  3. TOBRAMYCIN [Suspect]
     Indication: CYSTIC FIBROSIS
     Dosage: CODE NOT BROKEN
     Dates: start: 20100811
  4. PULMOZYME [Concomitant]
     Dosage: UNK
  5. ACETYLCYSTEINE [Concomitant]
     Dosage: UNK
  6. AZITHROMYCIN [Concomitant]
     Dosage: UNK
  7. CREON [Concomitant]
     Dosage: UNK
  8. ALBUTEROL [Concomitant]
     Indication: BRONCHIAL DISORDER
     Dosage: UNK

REACTIONS (11)
  - BLOOD FIBRINOGEN INCREASED [None]
  - COUGH [None]
  - DISEASE PROGRESSION [None]
  - INCREASED UPPER AIRWAY SECRETION [None]
  - LEUKOCYTOSIS [None]
  - LUNG INFECTION [None]
  - PNEUMONIA [None]
  - PSEUDOMONAS INFECTION [None]
  - PULMONARY FUNCTION TEST DECREASED [None]
  - PYREXIA [None]
  - RED BLOOD CELL SEDIMENTATION RATE INCREASED [None]
